FAERS Safety Report 11716436 (Version 1)
Quarter: 2015Q4

REPORT INFORMATION
  Report Type: Report from Study
  Country: CA (occurrence: CA)
  Receive Date: 20151109
  Receipt Date: 20151109
  Transmission Date: 20160304
  Serious: Yes (Hospitalization, Congenital Anomaly, Other)
  Sender: FDA-Public Use
  Company Number: CA-BRISTOL-MYERS SQUIBB COMPANY-15229404

PATIENT
  Age: 1 Day
  Sex: Male
  Weight: 3.66 kg

DRUGS (3)
  1. ATAZANAVIR SULFATE [Suspect]
     Active Substance: ATAZANAVIR SULFATE
     Indication: PRODUCT USED FOR UNKNOWN INDICATION
     Route: 064
  2. EPZICOM [Concomitant]
     Active Substance: ABACAVIR SULFATE\LAMIVUDINE
     Indication: PRODUCT USED FOR UNKNOWN INDICATION
     Dosage: UNK
     Route: 064
  3. NORVIR [Concomitant]
     Active Substance: RITONAVIR
     Indication: PRODUCT USED FOR UNKNOWN INDICATION
     Dosage: UNK
     Route: 064

REACTIONS (14)
  - Penis disorder [Unknown]
  - Feeding disorder of infancy or early childhood [Unknown]
  - High arched palate [Unknown]
  - Eye discharge [Unknown]
  - Vomiting [Unknown]
  - Limb malformation [Unknown]
  - Rhinorrhoea [Unknown]
  - Adactyly [Unknown]
  - Hyperbilirubinaemia [Unknown]
  - Gastrooesophageal reflux disease [Unknown]
  - Skeletal dysplasia [Unknown]
  - Foetal exposure during pregnancy [Recovered/Resolved]
  - Neonatal tachypnoea [Unknown]
  - Congenital skin dimples [Unknown]
